FAERS Safety Report 23812666 (Version 2)
Quarter: 2024Q2

REPORT INFORMATION
  Report Type: Spontaneous
  Country: AU (occurrence: AU)
  Receive Date: 20240503
  Receipt Date: 20240516
  Transmission Date: 20240716
  Serious: Yes (Other)
  Sender: FDA-Public Use
  Company Number: AU-ALKEM LABORATORIES LIMITED-AU-ALKEM-2024-09021

PATIENT
  Age: 2 Year
  Sex: Male

DRUGS (1)
  1. LAMOTRIGINE [Suspect]
     Active Substance: LAMOTRIGINE
     Indication: Product used for unknown indication
     Dosage: UNK (UP TO 43 MG/KG TABLET)
     Route: 048

REACTIONS (8)
  - Overdose [Unknown]
  - Toxicity to various agents [Unknown]
  - Seizure [Unknown]
  - Hyperreflexia [Unknown]
  - Ataxia [Unknown]
  - Nystagmus [Unknown]
  - Somnolence [Unknown]
  - Vomiting [Unknown]
